FAERS Safety Report 24588173 (Version 2)
Quarter: 2025Q1

REPORT INFORMATION
  Report Type: Report from Study
  Country: CA (occurrence: CA)
  Receive Date: 20241107
  Receipt Date: 20250301
  Transmission Date: 20250408
  Serious: No
  Sender: TAKEDA
  Company Number: CA-TAKEDA-2024TUS110401

PATIENT
  Sex: Female

DRUGS (3)
  1. VEDOLIZUMAB [Suspect]
     Active Substance: VEDOLIZUMAB
     Indication: Crohn^s disease
  2. NIFEDIPINE [Concomitant]
     Active Substance: NIFEDIPINE
  3. Amilozide [Concomitant]

REACTIONS (2)
  - COVID-19 [Unknown]
  - Brain fog [Not Recovered/Not Resolved]
